FAERS Safety Report 6665928-0 (Version None)
Quarter: 2010Q1

REPORT INFORMATION
  Report Type: 
  Country: None (occurrence: None)
  Receive Date: 20100326
  Receipt Date: 20090527
  Transmission Date: 20100710
  Serious: Yes (Other)
  Sender: FDA-Public Use
  Company Number: 2009SU0124

PATIENT
  Age: 75 Year
  Sex: Female

DRUGS (2)
  1. SULAR [Suspect]
     Dosage: 34 MG
     Dates: start: 20090202, end: 20090210
  2. NISOLDIPINE [Suspect]

REACTIONS (7)
  - ANXIETY [None]
  - ASTHENIA [None]
  - DRUG INEFFECTIVE [None]
  - FATIGUE [None]
  - HEADACHE [None]
  - PALPITATIONS [None]
  - TACHYCARDIA [None]
